FAERS Safety Report 18674082 (Version 2)
Quarter: 2021Q1

REPORT INFORMATION
  Report Type: Spontaneous
  Country: US (occurrence: US)
  Receive Date: 20201229
  Receipt Date: 20210107
  Transmission Date: 20210419
  Serious: Yes (Hospitalization, Other)
  Sender: FDA-Public Use
  Company Number: US-CIPLA LTD.-2020US09422

PATIENT

DRUGS (1)
  1. BUPROPION. [Suspect]
     Active Substance: BUPROPION
     Dosage: 53 SUSTAINED?RELEASE TABLETS (MAXIMUM DOSE 7.95 G)
     Route: 048

REACTIONS (5)
  - Serotonin syndrome [Recovered/Resolved]
  - Electrocardiogram QT prolonged [Unknown]
  - Supraventricular tachycardia [Unknown]
  - Sinus tachycardia [Unknown]
  - Intentional overdose [Unknown]
